FAERS Safety Report 9103964 (Version 11)
Quarter: 2014Q2

REPORT INFORMATION
  Report Type: Spontaneous
  Country: US (occurrence: US)
  Receive Date: 20130219
  Receipt Date: 20140401
  Transmission Date: 20141212
  Serious: Yes (Hospitalization)
  Sender: FDA-Public Use
  Company Number: US-JNJFOC-20120109914

PATIENT
  Age: 42 Year
  Sex: Female
  Weight: 63 kg

DRUGS (12)
  1. TYLENOL PM [Suspect]
     Indication: INFLUENZA
     Route: 065
     Dates: start: 20100217, end: 20100224
  2. TYLENOL PM [Suspect]
     Indication: INSOMNIA
     Route: 065
     Dates: start: 20100217, end: 20100224
  3. TYLENOL EXTRA STRENGTH [Suspect]
     Indication: INFLUENZA
     Route: 065
     Dates: start: 20100217, end: 20100224
  4. TYLENOL EXTRA STRENGTH [Suspect]
     Indication: NASOPHARYNGITIS
     Route: 065
     Dates: start: 20100217, end: 20100224
  5. TYLENOL EXTRA STRENGTH [Suspect]
     Indication: HEADACHE
     Route: 065
     Dates: start: 20100217, end: 20100224
  6. BENZODIAZEPINES NOS [Suspect]
     Indication: PRODUCT USED FOR UNKNOWN INDICATION
     Route: 065
  7. XANAX [Concomitant]
     Indication: PREMENSTRUAL SYNDROME
  8. VALIUM [Concomitant]
     Indication: PRODUCT USED FOR UNKNOWN INDICATION
  9. ULTRAM [Concomitant]
     Indication: PRODUCT USED FOR UNKNOWN INDICATION
     Route: 065
  10. ADVIL [Concomitant]
     Indication: PRODUCT USED FOR UNKNOWN INDICATION
     Route: 065
  11. PSEUDOEPHEDRINE [Concomitant]
     Indication: PRODUCT USED FOR UNKNOWN INDICATION
     Route: 065
  12. PRISTIQ [Concomitant]
     Indication: PRODUCT USED FOR UNKNOWN INDICATION

REACTIONS (10)
  - Mallory-Weiss syndrome [Unknown]
  - Depression [Recovering/Resolving]
  - Hepatic encephalopathy [Recovered/Resolved]
  - Epistaxis [Recovered/Resolved]
  - Coagulopathy [Recovered/Resolved]
  - Deep vein thrombosis [Unknown]
  - Respiratory failure [Recovered/Resolved]
  - Acute hepatic failure [Recovering/Resolving]
  - Renal failure acute [Recovered/Resolved]
  - Overdose [Recovering/Resolving]
